FAERS Safety Report 7512604-8 (Version None)
Quarter: 2011Q2

REPORT INFORMATION
  Report Type: 
  Country: None (occurrence: None)
  Receive Date: 20110531
  Receipt Date: 20110524
  Transmission Date: 20111010
  Serious: Yes (Other)
  Sender: FDA-Public Use
  Company Number: US-PFIZER INC-2011113209

PATIENT
  Age: 31 Year
  Sex: Male
  Weight: 108.8 kg

DRUGS (1)
  1. VIAGRA [Suspect]
     Dosage: 200 MG, DAILY
     Route: 048
     Dates: start: 20110524

REACTIONS (3)
  - INCORRECT DOSE ADMINISTERED [None]
  - PENIS DISORDER [None]
  - GENITAL SWELLING [None]
